FAERS Safety Report 21311455 (Version 1)
Quarter: 2022Q3

REPORT INFORMATION
  Report Type: Spontaneous
  Country: US (occurrence: None)
  Receive Date: 20220908
  Receipt Date: 20220908
  Transmission Date: 20221027
  Serious: No
  Sender: FDA-Public Use
  Company Number: None

PATIENT
  Age: 21 Year
  Sex: Female
  Weight: 113.4 kg

DRUGS (1)
  1. HUMIRA [Suspect]
     Active Substance: ADALIMUMAB
     Indication: Psoriasis
     Dosage: INJECT 80MG (2 PENS) SUBCUTANEOUSLY  ON DAY 1, 49MG (1 PEN)  ON DAY 8, THEN 40MG EVERY OTHER WEEK (O
     Route: 058
     Dates: start: 202206

REACTIONS (4)
  - Malaise [None]
  - Rhinorrhoea [None]
  - Sinus disorder [None]
  - Oral herpes [None]
